FAERS Safety Report 11638936 (Version 2)
Quarter: 2016Q2

REPORT INFORMATION
  Report Type: Report from Study
  Country: US (occurrence: US)
  Receive Date: 20151018
  Receipt Date: 20160503
  Transmission Date: 20160815
  Serious: No
  Sender: FDA-Public Use
  Company Number: US-AMGEN-USASL2015099757

PATIENT
  Age: 51 Year
  Sex: Female

DRUGS (2)
  1. ENBREL [Suspect]
     Active Substance: ETANERCEPT
     Indication: ANKYLOSING SPONDYLITIS
  2. ENBREL [Suspect]
     Active Substance: ETANERCEPT
     Indication: SPONDYLITIS
     Dosage: 50 MG, QWK
     Route: 065
     Dates: start: 20110301

REACTIONS (6)
  - Injury associated with device [Unknown]
  - Incorrect dose administered [Unknown]
  - Device issue [Unknown]
  - Nasopharyngitis [Unknown]
  - Pain [Unknown]
  - Cystitis [Unknown]

NARRATIVE: CASE EVENT DATE: 2014
